FAERS Safety Report 8522362-6 (Version None)
Quarter: 2012Q3

REPORT INFORMATION
  Report Type: 
  Country: None (occurrence: None)
  Receive Date: 20120719
  Receipt Date: 20120712
  Transmission Date: 20120928
  Serious: Yes (Hospitalization)
  Sender: FDA-Public Use
  Company Number: RO-ABBOTT-12P-135-0956152-00

PATIENT
  Sex: Female
  Weight: 55 kg

DRUGS (12)
  1. SPIRONOLACTONE [Concomitant]
     Indication: HYPOKALAEMIA
     Route: 048
     Dates: start: 20030615
  2. SODIUM BICARBONATE [Concomitant]
     Indication: METABOLIC ACIDOSIS
     Route: 048
     Dates: start: 20110923
  3. ESOMEPRAZOLE MAGNESIUM [Concomitant]
     Indication: PANCREATITIS ACUTE
  4. ZEMPLAR [Suspect]
     Indication: HYPERPARATHYROIDISM SECONDARY
     Route: 048
     Dates: start: 20110927
  5. FUROSEMIDE [Concomitant]
     Indication: FLUID RETENTION
     Dosage: EVERY OTHER DAY
     Route: 048
     Dates: start: 20110927
  6. ESOMEPRAZOLE MAGNESIUM [Concomitant]
     Indication: HYPERCHLORHYDRIA
     Route: 048
     Dates: start: 20120505, end: 20120521
  7. TRIFERMENT [Concomitant]
     Indication: PANCREATITIS ACUTE
  8. ALLOPURINOL [Concomitant]
     Indication: HYPERURICAEMIA
     Route: 048
     Dates: start: 20021115
  9. COZAAR [Concomitant]
     Indication: HYPERTENSION
     Route: 048
     Dates: start: 20021116
  10. ATORVASTATIN [Concomitant]
     Indication: DYSLIPIDAEMIA
     Route: 048
     Dates: start: 20110920
  11. DILTIAZEM [Concomitant]
     Indication: SECONDARY HYPERTENSION
     Route: 048
     Dates: start: 20120409
  12. TRIFERMENT [Concomitant]
     Indication: PANCREATIC ENZYMES ABNORMAL
     Route: 048
     Dates: start: 20120507, end: 20120607

REACTIONS (2)
  - OEDEMATOUS PANCREATITIS [None]
  - RENAL HYPERTENSION [None]
